FAERS Safety Report 12672848 (Version 1)
Quarter: 2016Q3

REPORT INFORMATION
  Report Type: Spontaneous
  Country: US (occurrence: US)
  Receive Date: 20160822
  Receipt Date: 20160822
  Transmission Date: 20161109
  Serious: No
  Sender: FDA-Public Use
  Company Number: US-JNJFOC-20160807725

PATIENT
  Age: 68 Year
  Sex: Female
  Weight: 51.71 kg

DRUGS (16)
  1. MENS ROGAINE EXTRA STRENGTH [Suspect]
     Active Substance: MINOXIDIL
     Indication: ALOPECIA
     Route: 061
     Dates: start: 201603
  2. CURCUMA LONGA RHIZOME [Concomitant]
     Indication: PROPHYLAXIS
     Dosage: YEARS
     Route: 065
  3. VITAMIN B [Concomitant]
     Active Substance: VITAMIN B
     Indication: PROBIOTIC THERAPY
     Dosage: 1 TEASPOON, 1 MONTH
     Route: 065
  4. VITAMIN D [Concomitant]
     Active Substance: CHOLECALCIFEROL
     Indication: ROUTINE HEALTH MAINTENANCE
     Dosage: MANY YEARS
     Route: 065
  5. OMEGA 3 6 9 [Concomitant]
     Active Substance: FISH OIL
     Indication: CARDIAC DISORDER
     Dosage: 1 TABLESPOON, 2 YEARS
     Route: 065
  6. MELATONIN [Concomitant]
     Active Substance: MELATONIN
     Indication: SLEEP DISORDER THERAPY
     Dosage: 3 OR 4 PER DAY, 10 YEARS
     Route: 065
  7. CLARITIN [Concomitant]
     Active Substance: LORATADINE
     Indication: MULTIPLE ALLERGIES
     Dosage: 1 PER DAY IF NEEDED, 10-20 YEARS
     Route: 065
  8. BIOTIN [Concomitant]
     Active Substance: BIOTIN
     Indication: HAIR DISORDER
     Dosage: 3 YEARS
     Route: 065
  9. PROGESTERONE. [Concomitant]
     Active Substance: PROGESTERONE
     Indication: HORMONE LEVEL ABNORMAL
     Dosage: 6 DROPS PER DAY, 1-2 YEARS
     Route: 065
  10. CORAL CALCIUM [Concomitant]
     Indication: OSTEOPOROSIS
     Dosage: 2 YEARS
     Route: 065
  11. DHA [Concomitant]
     Active Substance: DIETARY SUPPLEMENT
     Indication: CEREBRAL DISORDER
     Dosage: 2 YEARS
     Route: 065
  12. MENS ROGAINE EXTRA STRENGTH [Suspect]
     Active Substance: MINOXIDIL
     Route: 061
  13. LEVOTHYROXINE. [Concomitant]
     Active Substance: LEVOTHYROXINE
     Indication: THYROID DISORDER
     Dosage: 16 YEARS
     Route: 065
  14. VERAPAMIL [Concomitant]
     Active Substance: VERAPAMIL HYDROCHLORIDE
     Indication: FOOT DEFORMITY
     Dosage: 3 OR 4 YEARS
     Route: 065
  15. ASPIRIN. [Concomitant]
     Active Substance: ASPIRIN
     Indication: CARDIAC DISORDER
     Dosage: 10 YEARS
     Route: 065
  16. CARVEDILOL. [Concomitant]
     Active Substance: CARVEDILOL
     Indication: CARDIAC DISORDER
     Dosage: 16 YEARS
     Route: 065

REACTIONS (4)
  - Product use issue [Recovered/Resolved]
  - Off label use [Recovered/Resolved]
  - Skin burning sensation [Recovered/Resolved]
  - Pruritus [Recovered/Resolved]

NARRATIVE: CASE EVENT DATE: 201603
